FAERS Safety Report 24690062 (Version 1)
Quarter: 2024Q4

REPORT INFORMATION
  Report Type: Spontaneous
  Country: US (occurrence: None)
  Receive Date: 20241202
  Receipt Date: 20241202
  Transmission Date: 20250115
  Serious: Yes (Other)
  Sender: Public
  Company Number: None

PATIENT
  Sex: Male

DRUGS (5)
  1. MYCOPHENOLIC ACID [Suspect]
     Active Substance: MYCOPHENOLIC ACID
     Indication: Renal transplant
     Dosage: OTHER FREQUENCY : EVERY12HOURS;?
     Route: 048
     Dates: start: 20190122
  2. GENGRAF [Concomitant]
     Active Substance: CYCLOSPORINE
  3. GENGRAF [Concomitant]
     Active Substance: CYCLOSPORINE
  4. KENALOG-40 INJ 40MG/ML [Concomitant]
  5. MYCOPHENOLATE MOFETIL [Concomitant]
     Active Substance: MYCOPHENOLATE MOFETIL

REACTIONS (1)
  - Neoplasm malignant [None]
